FAERS Safety Report 19846713 (Version 1)
Quarter: 2021Q3

REPORT INFORMATION
  Report Type: Spontaneous
  Country: US (occurrence: US)
  Receive Date: 20210917
  Receipt Date: 20210917
  Transmission Date: 20211014
  Serious: Yes (Other)
  Sender: FDA-Public Use
  Company Number: US-ACCORD-238271

PATIENT
  Age: 61 Year
  Sex: Male

DRUGS (1)
  1. ATORVASTATIN/ATORVASTATIN CALCIUM [Suspect]
     Active Substance: ATORVASTATIN CALCIUM
     Indication: INTERVERTEBRAL DISC DEGENERATION

REACTIONS (4)
  - Fall [Unknown]
  - Off label use [Unknown]
  - Myopathy [Recovering/Resolving]
  - Polymyositis [Recovering/Resolving]
